FAERS Safety Report 13069749 (Version 3)
Quarter: 2017Q1

REPORT INFORMATION
  Report Type: Spontaneous
  Country: US (occurrence: US)
  Receive Date: 20161228
  Receipt Date: 20170306
  Transmission Date: 20170428
  Serious: No
  Sender: FDA-Public Use
  Company Number: US-009507513-1612USA013381

PATIENT
  Sex: Female
  Weight: 65.31 kg

DRUGS (1)
  1. NEXPLANON [Suspect]
     Active Substance: ETONOGESTREL
     Dosage: INTO THE LEFT ARM
     Route: 059
     Dates: start: 20161026

REACTIONS (5)
  - Device deployment issue [Not Recovered/Not Resolved]
  - Impaired healing [Unknown]
  - Skin injury [Not Recovered/Not Resolved]
  - Complication of device insertion [Not Recovered/Not Resolved]
  - Device difficult to use [Recovered/Resolved]

NARRATIVE: CASE EVENT DATE: 20161026
